FAERS Safety Report 13622213 (Version 1)
Quarter: 2017Q2

REPORT INFORMATION
  Report Type: Spontaneous
  Country: US (occurrence: US)
  Receive Date: 20170607
  Receipt Date: 20170607
  Transmission Date: 20170830
  Serious: No
  Sender: FDA-Public Use
  Company Number: US-ROCHE-500022

PATIENT
  Age: 56 Year
  Sex: Male
  Weight: 155 kg

DRUGS (6)
  1. SUSTIVA [Concomitant]
     Active Substance: EFAVIRENZ
     Route: 065
  2. TAMSULOSIN [Concomitant]
     Active Substance: TAMSULOSIN
     Route: 065
  3. POTASSIUM TARTRATE [Concomitant]
     Active Substance: POTASSIUM TARTRATE
     Route: 065
  4. ALLEGRA [Concomitant]
     Active Substance: FEXOFENADINE HYDROCHLORIDE
     Route: 065
  5. FUZEON [Suspect]
     Active Substance: ENFUVIRTIDE
     Indication: HIV INFECTION
     Route: 065
  6. KALETRA [Concomitant]
     Active Substance: LOPINAVIR\RITONAVIR
     Route: 065

REACTIONS (3)
  - No adverse event [Unknown]
  - Accidental exposure to product [Unknown]
  - Complication associated with device [Unknown]

NARRATIVE: CASE EVENT DATE: 200802
